FAERS Safety Report 6053557-1 (Version None)
Quarter: 2009Q1

REPORT INFORMATION
  Report Type: 
  Country: None (occurrence: None)
  Receive Date: 20090123
  Receipt Date: 20090114
  Transmission Date: 20090719
  Serious: No
  Sender: FDA-Public Use
  Company Number: 005447

PATIENT
  Age: 64 Year
  Sex: Female

DRUGS (10)
  1. BUSULFEX [Suspect]
     Indication: STEM CELL TRANSPLANT
     Dosage: 4.8 ML, TID; 4.8 ML, QID; 4.8 ML, QD
     Route: 042
     Dates: start: 20071024, end: 20071024
  2. BUSULFEX [Suspect]
     Indication: STEM CELL TRANSPLANT
     Dosage: 4.8 ML, TID; 4.8 ML, QID; 4.8 ML, QD
     Route: 042
     Dates: start: 20071025, end: 20071027
  3. BUSULFEX [Suspect]
     Indication: STEM CELL TRANSPLANT
     Dosage: 4.8 ML, TID; 4.8 ML, QID; 4.8 ML, QD
     Route: 042
     Dates: start: 20071028, end: 20071028
  4. FLUDARABINE PHOSPHATE [Suspect]
     Indication: DRUG USE FOR UNKNOWN INDICATION
     Dosage: 35 MG, QD
     Route: 042
     Dates: start: 20071025, end: 20071029
  5. CYTARABINE [Suspect]
     Indication: DRUG USE FOR UNKNOWN INDICATION
     Dosage: 4800 MG, QD
     Route: 042
     Dates: start: 20071029, end: 20071030
  6. PHENYTOIN [Concomitant]
  7. DEPAKENE [Concomitant]
  8. LENOGRASTIM (LENOGRASTIM) [Concomitant]
  9. TACROLIMUS [Concomitant]
  10. GANCICLOVIR [Concomitant]

REACTIONS (12)
  - ACUTE GRAFT VERSUS HOST DISEASE [None]
  - ANOREXIA [None]
  - BONE MARROW TRANSPLANT REJECTION [None]
  - CHRONIC GRAFT VERSUS HOST DISEASE [None]
  - DIARRHOEA [None]
  - FEBRILE NEUTROPENIA [None]
  - GAMMA-GLUTAMYLTRANSFERASE INCREASED [None]
  - MALAISE [None]
  - NAUSEA [None]
  - STOMATITIS [None]
  - VIRAL HAEMORRHAGIC CYSTITIS [None]
  - VOMITING [None]
